FAERS Safety Report 8794497 (Version 1)
Quarter: 2012Q4

REPORT INFORMATION
  Report Type: 
  Country: JP (occurrence: JP)
  Receive Date: 20120917
  Receipt Date: 20120917
  Transmission Date: 20130627
  Serious: Yes (Other)
  Sender: FDA-Public Use
  Company Number: PHHY2012JP079935

PATIENT
  Age: 41 Year
  Sex: Male

DRUGS (6)
  1. IMUSERA [Suspect]
     Indication: RELAPSING-REMITTING MULTIPLE SCLEROSIS
     Dosage: 0.5 mg, UNK
     Route: 048
     Dates: start: 20120221, end: 20120319
  2. ALFACALCIDOL [Concomitant]
     Dosage: UNK UKN, UNK
     Route: 048
  3. RIVOTRIL [Concomitant]
     Dosage: 0.5 mg, UNK
     Route: 048
  4. ARTANE [Concomitant]
     Dosage: 2 mg, UNK
     Route: 048
  5. ALLELOCK [Concomitant]
     Dosage: 10 mg, UNK
     Route: 048
  6. FAMOTIDINE [Concomitant]
     Dosage: 20 mg, UNK
     Route: 048

REACTIONS (8)
  - Central nervous system lesion [Unknown]
  - Lymphocyte count decreased [Recovered/Resolved]
  - Malaise [Recovered/Resolved]
  - Fatigue [Unknown]
  - Hepatic function abnormal [Recovering/Resolving]
  - Alanine aminotransferase increased [Recovering/Resolving]
  - Aspartate aminotransferase increased [Recovering/Resolving]
  - Gamma-glutamyltransferase increased [Recovering/Resolving]
